FAERS Safety Report 8844875 (Version 1)
Quarter: 2012Q4

REPORT INFORMATION
  Report Type: 
  Country: US (occurrence: US)
  Receive Date: 20121017
  Receipt Date: 20121017
  Transmission Date: 20130627
  Serious: No
  Sender: FDA-Public Use
  Company Number: US-VERTEX PHARMACEUTICAL INC.-AE-2012-002923

PATIENT
  Age: 52 Year
  Sex: Male
  Weight: 64 kg

DRUGS (9)
  1. INCIVEK [Suspect]
     Indication: HEPATITIS C
     Dosage: 750 mg, tid
     Route: 048
     Dates: start: 20120208
  2. PEGASYS [Suspect]
     Indication: HEPATITIS C
     Dosage: 180 ?g, UNK
     Route: 058
     Dates: start: 20120208
  3. RIBAVIRIN [Suspect]
     Indication: HEPATITIS C
     Dosage: 400 mg, bid
     Route: 048
     Dates: start: 20120208
  4. RIBAVIRIN [Suspect]
     Dosage: 1200 mg, qd
     Route: 048
  5. NEXIUM [Concomitant]
     Route: 048
  6. ZYRTEC [Concomitant]
     Indication: HYPERSENSITIVITY
     Route: 048
  7. FLEXERIL [Concomitant]
     Route: 048
  8. NEURONTIN [Concomitant]
     Route: 048
  9. CLEOCIN [Concomitant]
     Indication: OPEN WOUND
     Route: 048
     Dates: start: 20120201

REACTIONS (10)
  - Arthralgia [Recovered/Resolved]
  - Influenza [Unknown]
  - Headache [Recovered/Resolved]
  - Pain [Unknown]
  - Therapeutic response unexpected [Unknown]
  - Asthenia [Unknown]
  - Rash pruritic [Unknown]
  - Vomiting [Unknown]
  - Diarrhoea [Unknown]
  - Nausea [Recovered/Resolved]
